FAERS Safety Report 9554775 (Version 1)
Quarter: 2013Q3

REPORT INFORMATION
  Report Type: Spontaneous
  Country: US (occurrence: US)
  Receive Date: 20130926
  Receipt Date: 20130926
  Transmission Date: 20140515
  Serious: Yes (Hospitalization)
  Sender: FDA-Public Use
  Company Number: US-BIOGENIDEC-2013BI090591

PATIENT
  Age: 41 Year
  Sex: Female

DRUGS (2)
  1. TYSABRI [Suspect]
     Indication: MULTIPLE SCLEROSIS
     Route: 042
     Dates: start: 20130408
  2. AMANTADINE [Concomitant]
     Indication: ASTHENIA
     Route: 048
     Dates: start: 201307

REACTIONS (2)
  - Sleep apnoea syndrome [Not Recovered/Not Resolved]
  - Asthenia [Recovered/Resolved]
